FAERS Safety Report 5027346-0 (Version None)
Quarter: 2006Q2

REPORT INFORMATION
  Report Type: 
  Country: None (occurrence: None)
  Receive Date: 20060612
  Receipt Date: 20060601
  Transmission Date: 20061013
  Serious: Yes (Other)
  Sender: FDA-Public Use
  Company Number: 2006070996

PATIENT
  Age: 25 Year
  Sex: Female

DRUGS (1)
  1. BENADRYL [Suspect]
     Indication: ASTHMA
     Dosage: ORAL
     Route: 048
     Dates: start: 20060201

REACTIONS (1)
  - ASTHMA [None]
